FAERS Safety Report 25641472 (Version 2)
Quarter: 2025Q3

REPORT INFORMATION
  Report Type: Report from Study
  Country: US (occurrence: US)
  Receive Date: 20250804
  Receipt Date: 20250829
  Transmission Date: 20251020
  Serious: Yes (Other)
  Sender: MALLINCKRODT
  Company Number: US-MALLINCKRODT-MNK202504505

PATIENT
  Sex: Female

DRUGS (3)
  1. CORTICOTROPIN [Suspect]
     Active Substance: CORTICOTROPIN
     Indication: Multiple sclerosis
     Dosage: 80 UNITS
     Route: 058
     Dates: start: 20110518
  2. CORTICOTROPIN [Suspect]
     Active Substance: CORTICOTROPIN
  3. AVONEX [Concomitant]
     Active Substance: INTERFERON BETA-1A
     Dates: start: 2015

REACTIONS (2)
  - Multiple sclerosis relapse [Unknown]
  - Fluid retention [Unknown]
